FAERS Safety Report 7732488-2 (Version None)
Quarter: 2011Q3

REPORT INFORMATION
  Report Type: 
  Country: None (occurrence: None)
  Receive Date: 20110906
  Receipt Date: 20110825
  Transmission Date: 20111222
  Serious: Yes (Hospitalization)
  Sender: FDA-Public Use
  Company Number: US-ASTRAZENECA-2011SE24645

PATIENT
  Age: 91 Year
  Sex: Female
  Weight: 72.6 kg

DRUGS (9)
  1. TYLENOL-500 [Concomitant]
     Dosage: 650, DAILY AT BEDTIME
  2. LIDODERM [Concomitant]
     Dosage: 2-3 THREE TIMES DAILY ON BACK
  3. PRAVASTATIN [Concomitant]
     Route: 048
  4. BISOPROLOL FUMARATE AND HYDROCHLOROTHIAZIDE [Concomitant]
     Dosage: 5/6.25 ONE TWICE DAILY
     Route: 048
  5. WARFARIN SODIUM [Concomitant]
     Dosage: 1-1 AND 1/2 DAILYX 7 DAYS A WEEK
     Route: 048
  6. RESTORIL [Concomitant]
     Route: 048
  7. NEXIUM [Suspect]
     Route: 048
  8. LOMOTIL [Concomitant]
  9. TIZANIDINE HCL [Concomitant]
     Indication: MUSCLE SPASMS

REACTIONS (4)
  - DEHYDRATION [None]
  - GASTROOESOPHAGEAL REFLUX DISEASE [None]
  - INFLUENZA [None]
  - ASTHENIA [None]
